FAERS Safety Report 5058603-X (Version None)
Quarter: 2006Q2

REPORT INFORMATION
  Report Type: 
  Country: None (occurrence: None)
  Receive Date: 20060627
  Receipt Date: 20060415
  Transmission Date: 20061013
  Serious: Yes (Death)
  Sender: FDA-Public Use
  Company Number: 444503

PATIENT
  Age: 33 Year
  Sex: Female

DRUGS (1)
  1. XELODA [Suspect]
     Indication: BREAST CANCER
     Dates: start: 20020515, end: 20020815

REACTIONS (1)
  - LUNG NEOPLASM MALIGNANT [None]
